FAERS Safety Report 9166471 (Version 6)
Quarter: 2015Q3

REPORT INFORMATION
  Report Type: Spontaneous
  Country: US (occurrence: US)
  Receive Date: 20130315
  Receipt Date: 20150803
  Transmission Date: 20151125
  Serious: Yes (Hospitalization, Other)
  Sender: FDA-Public Use
  Company Number: US-009507513-1303USA006767

PATIENT
  Sex: Male
  Weight: 83.5 kg

DRUGS (2)
  1. PROPECIA [Suspect]
     Active Substance: FINASTERIDE
     Indication: ALOPECIA
     Dosage: 1 MG, QD
     Route: 048
     Dates: start: 20020717, end: 20080605
  2. PROPECIA [Suspect]
     Active Substance: FINASTERIDE
     Dosage: 1 MG, QD
     Route: 048
     Dates: end: 2010

REACTIONS (37)
  - Deafness [Unknown]
  - Squamous cell carcinoma of the tongue [Unknown]
  - Metastases to lymph nodes [Unknown]
  - Cough [Unknown]
  - Malaise [Unknown]
  - Tinnitus [Unknown]
  - Dysphagia [Unknown]
  - Laceration [Unknown]
  - Radiotherapy [Unknown]
  - Ear pain [Unknown]
  - Metastases to lymph nodes [Unknown]
  - Cerumen impaction [Unknown]
  - Hand dermatitis [Unknown]
  - Fatigue [Unknown]
  - Fatigue [Unknown]
  - Weight decreased [Unknown]
  - Squamous cell carcinoma of the tongue [Unknown]
  - Back pain [Unknown]
  - Lymphadenopathy [Unknown]
  - Radiotherapy [Unknown]
  - Radical neck dissection [Unknown]
  - Glossectomy [Unknown]
  - Joint range of motion decreased [Unknown]
  - Hypogonadism [Unknown]
  - Erectile dysfunction [Not Recovered/Not Resolved]
  - Chest pain [Unknown]
  - Sexual dysfunction [Not Recovered/Not Resolved]
  - Nocturia [Unknown]
  - Pollakiuria [Unknown]
  - Ear pain [Unknown]
  - Dysarthria [Unknown]
  - Neck mass [Unknown]
  - Rash [Unknown]
  - Glossectomy [Unknown]
  - Constipation [Unknown]
  - Acne [Recovering/Resolving]
  - Loss of libido [Unknown]

NARRATIVE: CASE EVENT DATE: 20030326
